FAERS Safety Report 4782249-1 (Version None)
Quarter: 2005Q3

REPORT INFORMATION
  Report Type: 
  Country: None (occurrence: None)
  Receive Date: 20050914
  Receipt Date: 20040809
  Transmission Date: 20060218
  Serious: Yes (Life-Threatening, Hospitalization, Other)
  Sender: FDA-Public Use
  Company Number: 163-20785-04080184

PATIENT
  Age: 84 Year
  Sex: Male

DRUGS (2)
  1. THALOMID [Suspect]
     Indication: METASTATIC MALIGNANT MELANOMA
     Dosage: 50 MG, DAILY, ORAL
     Route: 048
     Dates: start: 20040717, end: 20040812
  2. TEMODAR [Suspect]
     Indication: METASTATIC MALIGNANT MELANOMA
     Dosage: 30 MG, TIMES 5 DAYS EVERY MONTH, ORAL
     Route: 048

REACTIONS (5)
  - ANAEMIA [None]
  - BLOOD PRESSURE FLUCTUATION [None]
  - GASTROINTESTINAL HAEMORRHAGE [None]
  - HYPERSENSITIVITY [None]
  - PANCYTOPENIA [None]
